FAERS Safety Report 24722645 (Version 1)
Quarter: 2024Q4

REPORT INFORMATION
  Report Type: Spontaneous
  Country: US (occurrence: US)
  Receive Date: 20241211
  Receipt Date: 20241211
  Transmission Date: 20250115
  Serious: Yes (Other)
  Sender: ATHENA
  Company Number: US-SABAL THERAPEUTICS LLC-2024-ATH-000081

PATIENT

DRUGS (1)
  1. OZOBAX [Suspect]
     Active Substance: BACLOFEN
     Indication: Product used for unknown indication
     Dosage: 10 MG, TID
     Route: 065

REACTIONS (1)
  - Neurotoxicity [Recovering/Resolving]
